FAERS Safety Report 10968157 (Version 1)
Quarter: 2015Q1

REPORT INFORMATION
  Report Type: Spontaneous
  Country: BR (occurrence: BR)
  Receive Date: 20150330
  Receipt Date: 20150330
  Transmission Date: 20150721
  Serious: Yes (Death, Other)
  Sender: FDA-Public Use
  Company Number: BR-PFIZER INC-2015106937

PATIENT
  Age: 71 Year
  Sex: Female

DRUGS (1)
  1. UPLYSO [Suspect]
     Active Substance: TALIGLUCERASE ALFA
     Dosage: UNK

REACTIONS (4)
  - Injury [Fatal]
  - Chronic kidney disease [Unknown]
  - Fall [Fatal]
  - Bone disorder [Unknown]
